FAERS Safety Report 12375916 (Version 1)
Quarter: 2016Q2

REPORT INFORMATION
  Report Type: Spontaneous
  Country: GB (occurrence: GB)
  Receive Date: 20160517
  Receipt Date: 20160517
  Transmission Date: 20160815
  Serious: Yes (Other)
  Sender: FDA-Public Use
  Company Number: GB-WATSON-2016-09590

PATIENT
  Age: 52 Year
  Sex: Female
  Weight: 88.9 kg

DRUGS (3)
  1. MST CONTINUS [Concomitant]
     Active Substance: MORPHINE SULFATE
     Indication: PRODUCT USED FOR UNKNOWN INDICATION
     Dosage: UNK
     Route: 065
  2. PREDNISON [Concomitant]
     Active Substance: PREDNISONE
     Indication: PRODUCT USED FOR UNKNOWN INDICATION
     Dosage: UNK
     Route: 065
  3. NAPROXEN (UNKNOWN) [Suspect]
     Active Substance: NAPROXEN
     Indication: MIXED CONNECTIVE TISSUE DISEASE
     Dosage: 200 MG, UNKNOWN
     Route: 048
     Dates: start: 201501, end: 20160402

REACTIONS (3)
  - Abdominal pain upper [Unknown]
  - Gastric ulcer [Recovering/Resolving]
  - Gastrooesophageal reflux disease [Unknown]

NARRATIVE: CASE EVENT DATE: 20160402
